FAERS Safety Report 16631716 (Version 1)
Quarter: 2019Q3

REPORT INFORMATION
  Report Type: Spontaneous
  Country: DE (occurrence: DE)
  Receive Date: 20190725
  Receipt Date: 20190725
  Transmission Date: 20191004
  Serious: Yes (Hospitalization)
  Sender: FDA-Public Use
  Company Number: DE-PFIZER INC-2019310310

PATIENT
  Age: 89 Year
  Sex: Female

DRUGS (7)
  1. ATORVASTATIN CALCIUM. [Suspect]
     Active Substance: ATORVASTATIN CALCIUM
     Dosage: 40 MG, 1X/DAY, (0-0-1-0)
  2. RISPERIDON [Concomitant]
     Active Substance: RISPERIDONE
     Dosage: 1 MG, AS NEEDED
  3. ACETYLSALICYLIC ACID [Concomitant]
     Active Substance: ASPIRIN
     Dosage: 100 MG, 1-0-0-0
  4. MOXONIDIN [Concomitant]
     Active Substance: MOXONIDINE
     Dosage: 0.2 MG, 1-0-1-0
  5. MEMANTIN [Concomitant]
     Active Substance: MEMANTINE
     Dosage: 20 MG, 1-0-0-0
  6. LEVOTHYROXINE SODIUM. [Concomitant]
     Active Substance: LEVOTHYROXINE SODIUM
     Dosage: 100 ?G, 1-0-0-0
  7. CARMEN [LERCANIDIPINE HYDROCHLORIDE] [Suspect]
     Active Substance: LERCANIDIPINE HYDROCHLORIDE
     Dosage: 10 MG, 2X/DAY, (1-0-1-0)

REACTIONS (1)
  - Swollen tongue [Unknown]

NARRATIVE: CASE EVENT DATE: 20171204
